FAERS Safety Report 4349241-2 (Version None)
Quarter: 2004Q2

REPORT INFORMATION
  Report Type: 
  Country: None (occurrence: None)
  Receive Date: 20040428
  Receipt Date: 19950726
  Transmission Date: 20050107
  Serious: Yes (Death, Life-Threatening, Hospitalization)
  Sender: FDA-Public Use
  Company Number: JP-MERCK-95101002

PATIENT
  Age: 2 Day
  Sex: Male
  Weight: 1 kg

DRUGS (6)
  1. DEXTROSE [Concomitant]
     Indication: HYPERKALAEMIA
     Route: 065
     Dates: start: 19950510, end: 19950511
  2. DOBUTAMINE HYDROCHLORIDE [Concomitant]
     Indication: SHOCK
     Route: 065
     Dates: start: 19950509, end: 19950519
  3. DOPAMINE HYDROCHLORIDE [Concomitant]
     Indication: SHOCK
     Route: 065
     Dates: start: 19950509, end: 19950519
  4. FACTOR XIII [Concomitant]
     Indication: HAEMORRHAGE INTRACRANIAL
     Route: 065
     Dates: start: 19950509, end: 19950511
  5. INDOCIN I.V. [Suspect]
     Indication: PATENT DUCTUS ARTERIOSUS
     Route: 042
     Dates: start: 19950511, end: 19950511
  6. INSULIN HUMAN [Concomitant]
     Indication: HYPERKALAEMIA
     Route: 065
     Dates: start: 19950510, end: 19950510

REACTIONS (4)
  - ACIDOSIS [None]
  - BRADYCARDIA [None]
  - HAEMORRHAGE INTRACRANIAL [None]
  - HYPOTENSION [None]
